FAERS Safety Report 6865037-1 (Version None)
Quarter: 2010Q3

REPORT INFORMATION
  Report Type: 
  Country: None (occurrence: None)
  Receive Date: 20100721
  Receipt Date: 20080407
  Transmission Date: 20110219
  Serious: No
  Sender: FDA-Public Use
  Company Number: US-PFIZER INC-2008032217

PATIENT
  Sex: Female
  Weight: 127.27 kg

DRUGS (7)
  1. CHANTIX [Suspect]
     Indication: SMOKING CESSATION THERAPY
     Dates: start: 20080330
  2. SEROQUEL [Concomitant]
  3. TOPAMAX [Concomitant]
  4. TRICOR [Concomitant]
  5. METFORMIN [Concomitant]
     Indication: DIABETES MELLITUS
  6. LIPITOR [Concomitant]
  7. PREVACID [Concomitant]

REACTIONS (2)
  - HYPERHIDROSIS [None]
  - MUSCLE SPASMS [None]
